FAERS Safety Report 17306483 (Version 3)
Quarter: 2020Q2

REPORT INFORMATION
  Report Type: Report from Study
  Country: US (occurrence: US)
  Receive Date: 20200123
  Receipt Date: 20200412
  Transmission Date: 20200713
  Serious: No
  Sender: FDA-Public Use
  Company Number: NVSC2020US016970

PATIENT
  Sex: Female

DRUGS (2)
  1. COSENTYX [Suspect]
     Active Substance: SECUKINUMAB
     Indication: PSORIASIS
     Dosage: 150 MG,
     Route: 058
  2. COSENTYX [Suspect]
     Active Substance: SECUKINUMAB
     Indication: PROSTATIC SPECIFIC ANTIGEN
     Dosage: 150 MG, QMO
     Route: 058

REACTIONS (4)
  - Inappropriate schedule of product administration [Recovered/Resolved]
  - Upper respiratory tract infection [Unknown]
  - Ill-defined disorder [Recovered/Resolved]
  - Sinusitis [Unknown]
